FAERS Safety Report 23676746 (Version 1)
Quarter: 2024Q1

REPORT INFORMATION
  Report Type: Spontaneous
  Country: DE (occurrence: DE)
  Receive Date: 20240327
  Receipt Date: 20240327
  Transmission Date: 20240409
  Serious: Yes (Other)
  Sender: FDA-Public Use
  Company Number: None

PATIENT
  Age: 49 Year
  Sex: Female

DRUGS (17)
  1. VALPROIC ACID [Suspect]
     Active Substance: VALPROIC ACID
     Indication: Chorea-acanthocytosis
     Dosage: 2 X 1000 MILLIGRAM
  2. VALPROIC ACID [Suspect]
     Active Substance: VALPROIC ACID
     Indication: Product used for unknown indication
     Dosage: 2 X 1000 MILLIGRAM
  3. VALPROIC ACID [Suspect]
     Active Substance: VALPROIC ACID
     Dosage: 2 X 1000 MILLIGRAM
  4. ZONISAMIDE [Suspect]
     Active Substance: ZONISAMIDE
     Indication: Product used for unknown indication
     Dosage: 2 X 100 MILLIGRAM
     Route: 065
  5. ZONISAMIDE [Suspect]
     Active Substance: ZONISAMIDE
     Indication: Chorea-acanthocytosis
     Dosage: 2 X 100 MILLIGRAM
  6. ZONISAMIDE [Suspect]
     Active Substance: ZONISAMIDE
     Dosage: 2 X 100 MILLIGRAM
     Route: 065
  7. LEVETIRACETAM [Suspect]
     Active Substance: LEVETIRACETAM
     Indication: Product used for unknown indication
     Dosage: 2 X 2000 MILLIGRAM
     Route: 065
  8. LEVETIRACETAM [Suspect]
     Active Substance: LEVETIRACETAM
     Indication: Chorea-acanthocytosis
     Dosage: 2 X 2000 MILLIGRAM
  9. LEVETIRACETAM [Suspect]
     Active Substance: LEVETIRACETAM
     Dosage: 2 X 2000 MILLIGRAM
     Route: 065
  10. CLOBAZAM [Suspect]
     Active Substance: CLOBAZAM
     Indication: Product used for unknown indication
     Dosage: 2 X 5 MILLIGRAM
     Route: 065
  11. CLOBAZAM [Suspect]
     Active Substance: CLOBAZAM
     Indication: Chorea-acanthocytosis
     Dosage: 2 X 5 MILLIGRAM
  12. CLOBAZAM [Suspect]
     Active Substance: CLOBAZAM
     Dosage: 2 X 5 MILLIGRAM
     Route: 065
  13. VITAMIN D NOS [Suspect]
     Active Substance: VITAMIN D NOS
     Indication: Product used for unknown indication
  14. VITAMIN D NOS [Suspect]
     Active Substance: VITAMIN D NOS
     Dosage: UNK
     Route: 065
  15. DASATINIB [Suspect]
     Active Substance: DASATINIB
     Indication: Chronic myeloid leukaemia
     Dosage: 100 MILLIGRAM, QD
     Route: 048
  16. DASATINIB [Suspect]
     Active Substance: DASATINIB
     Indication: Chorea-acanthocytosis
     Dosage: 100 MILLIGRAM, DAILY (25.8 WEEKS)
     Route: 048
  17. VITAMIN D [Concomitant]
     Active Substance: VITAMIN D NOS
     Indication: Product used for unknown indication
     Dosage: UNK
     Route: 065

REACTIONS (7)
  - Thrombocytopenia [Recovered/Resolved]
  - Off label use [Recovering/Resolving]
  - Haematocrit decreased [Recovered/Resolved]
  - Red blood cell count decreased [Recovered/Resolved]
  - Acne [Unknown]
  - Alopecia [Unknown]
  - Frequent bowel movements [Unknown]
